FAERS Safety Report 18415921 (Version 1)
Quarter: 2020Q4

REPORT INFORMATION
  Report Type: Spontaneous
  Country: US (occurrence: US)
  Receive Date: 20201022
  Receipt Date: 20201022
  Transmission Date: 20210114
  Serious: Yes (Hospitalization)
  Sender: FDA-Public Use
  Company Number: None

PATIENT
  Age: 68 Year
  Sex: Female
  Weight: 48.99 kg

DRUGS (21)
  1. AVASTIN [Suspect]
     Active Substance: BEVACIZUMAB
     Indication: CHOLANGIOCARCINOMA
     Dosage: ?          OTHER FREQUENCY:ONCE EVERY 2 WEEKS;?
     Route: 042
     Dates: start: 20200413, end: 20201022
  2. EMEND [Concomitant]
     Active Substance: APREPITANT
  3. DIPHENHYDRAMINE 50 MG/ML VIAL [Concomitant]
  4. FLUOROURACIL 1000 MG/20 ML VIAL [Concomitant]
  5. ZARXIO 300 MCG/0.5 ML SYRN [Concomitant]
  6. LEUCOVORIN 200 MG VIAL [Concomitant]
  7. XARELTP [Concomitant]
  8. METOPROLOL SUCCINATE ER [Concomitant]
     Active Substance: METOPROLOL SUCCINATE
  9. VITAMIN D3 [Concomitant]
     Active Substance: CHOLECALCIFEROL
  10. FAMOTIDINE 20 MG/2 ML VIAL [Concomitant]
  11. PACLITAXEL 150 MG/25 ML VIAL [Concomitant]
  12. SIMVASTATIN. [Concomitant]
     Active Substance: SIMVASTATIN
  13. ONDANSETRON 4 MG/2 ML VIAL [Concomitant]
  14. MYCOPHENOLATE MOFETIL. [Concomitant]
     Active Substance: MYCOPHENOLATE MOFETIL
  15. OXALIPLATIN 50 MG/10 ML VIAL [Concomitant]
  16. DEXAMETHASONE. [Suspect]
     Active Substance: DEXAMETHASONE
     Indication: INFLAMMATION
     Dosage: ?          OTHER FREQUENCY:DAY 1 + 8 Q 21D;?
     Route: 042
     Dates: start: 20190729, end: 20201022
  17. AMLODIPINE BESYLATE. [Concomitant]
     Active Substance: AMLODIPINE BESYLATE
  18. VITAMIN B6 [Concomitant]
     Active Substance: PYRIDOXINE HYDROCHLORIDE
  19. GEMCITABINE 1 GM VIAL [Concomitant]
  20. CALCIUM CARBONATE ANTACID [Concomitant]
  21. ONDANSETRON 4 MG/2 ML VIAL [Concomitant]

REACTIONS (4)
  - Hospitalisation [None]
  - Hypophagia [None]
  - Poverty of speech [None]
  - Malaise [None]

NARRATIVE: CASE EVENT DATE: 20201022
